FAERS Safety Report 8172459-8 (Version None)
Quarter: 2012Q1

REPORT INFORMATION
  Report Type: 
  Country: None (occurrence: None)
  Receive Date: 20120227
  Receipt Date: 20120227
  Transmission Date: 20120608
  Serious: No
  Sender: FDA-Public Use
  Company Number: None

PATIENT
  Sex: Female
  Weight: 80 kg

DRUGS (3)
  1. IFOSFAMIDE [Suspect]
     Dosage: 10.8 G
  2. NEULASTA [Suspect]
     Dosage: 6 MG
  3. TAXOL [Suspect]
     Dosage: 319 MG

REACTIONS (2)
  - WHITE BLOOD CELL COUNT DECREASED [None]
  - NEUTROPHIL COUNT DECREASED [None]
